FAERS Safety Report 8307445-8 (Version None)
Quarter: 2012Q2

REPORT INFORMATION
  Report Type: 
  Country: None (occurrence: None)
  Receive Date: 20120424
  Receipt Date: 20120418
  Transmission Date: 20120825
  Serious: Yes (Other)
  Sender: FDA-Public Use
  Company Number: US-B.I. PHARMACEUTICALS,INC./RIDGEFIELD-2012-BP-07381BP

PATIENT
  Sex: Male

DRUGS (1)
  1. PRADAXA [Suspect]
     Indication: ATRIAL FIBRILLATION
     Dosage: 300 MG
     Route: 048
     Dates: start: 20120301

REACTIONS (6)
  - NAUSEA [None]
  - ABDOMINAL PAIN [None]
  - PYREXIA [None]
  - SPLENIC INFARCTION [None]
  - RENAL INFARCT [None]
  - INFECTION [None]
